FAERS Safety Report 5618152-4 (Version None)
Quarter: 2008Q1

REPORT INFORMATION
  Report Type: 
  Country: None (occurrence: None)
  Receive Date: 20080207
  Receipt Date: 20071015
  Transmission Date: 20080703
  Serious: No
  Sender: FDA-Public Use
  Company Number: A0687717A

PATIENT
  Sex: Male

DRUGS (2)
  1. PAXIL [Suspect]
     Dosage: 20MG PER DAY
     Route: 048
     Dates: end: 20060101
  2. PAXIL [Suspect]
     Route: 048
     Dates: start: 20070901

REACTIONS (3)
  - DRY MOUTH [None]
  - FATIGUE [None]
  - PRURITUS [None]
